FAERS Safety Report 7535509-5 (Version None)
Quarter: 2011Q2

REPORT INFORMATION
  Report Type: 
  Country: None (occurrence: None)
  Receive Date: 20110609
  Receipt Date: 20110103
  Transmission Date: 20111010
  Serious: Yes (Hospitalization, Other)
  Sender: FDA-Public Use
  Company Number: US-BAYER-201026422NA

PATIENT
  Age: 26 Year
  Sex: Female
  Weight: 79.365 kg

DRUGS (3)
  1. YAZ [Suspect]
     Route: 048
     Dates: start: 20071101
  2. YASMIN [Suspect]
     Indication: CONTRACEPTION
     Dosage: UNK
     Route: 048
     Dates: start: 20071101, end: 20080502
  3. YASMIN [Suspect]
     Dosage: UNK
     Dates: start: 20080509, end: 20080613

REACTIONS (5)
  - PULMONARY INFARCTION [None]
  - PELVIC VENOUS THROMBOSIS [None]
  - ABDOMINAL PAIN [None]
  - PULMONARY EMBOLISM [None]
  - PLEURITIC PAIN [None]
